FAERS Safety Report 8022682-8 (Version None)
Quarter: 2012Q1

REPORT INFORMATION
  Report Type: 
  Country: None (occurrence: None)
  Receive Date: 20120104
  Receipt Date: 20111228
  Transmission Date: 20120608
  Serious: Yes (Other)
  Sender: FDA-Public Use
  Company Number: PR-ABBOTT-11P-131-0885371-00

PATIENT
  Sex: Female
  Weight: 45.4 kg

DRUGS (4)
  1. VITAMIN B COMPLEX CAP [Concomitant]
     Indication: PRODUCT USED FOR UNKNOWN INDICATION
     Dosage: 1 TABLET DAILY
     Route: 048
  2. HUMIRA [Suspect]
     Indication: RHEUMATOID ARTHRITIS
     Route: 058
     Dates: end: 20111106
  3. PRILOSEC [Concomitant]
     Indication: GASTRITIS
     Route: 048
  4. MULTI-VITAMIN [Concomitant]
     Indication: PRODUCT USED FOR UNKNOWN INDICATION
     Dosage: 1 TABLET DAILY
     Route: 048

REACTIONS (2)
  - VAGINAL HAEMORRHAGE [None]
  - THROMBOSIS [None]
